FAERS Safety Report 7103111-5 (Version None)
Quarter: 2010Q4

REPORT INFORMATION
  Report Type: 
  Country: None (occurrence: None)
  Receive Date: 20101115
  Receipt Date: 20100224
  Transmission Date: 20110411
  Serious: No
  Sender: FDA-Public Use
  Company Number: US-KINGPHARMUSA00001-K201000223

PATIENT
  Sex: Male

DRUGS (1)
  1. LEVOXYL [Suspect]
     Indication: LABORATORY TEST ABNORMAL
     Dosage: 50 MCG, QD
     Route: 048
     Dates: start: 20100222

REACTIONS (1)
  - ORAL DISCOMFORT [None]
